FAERS Safety Report 8075709-1 (Version None)
Quarter: 2012Q1

REPORT INFORMATION
  Report Type: 
  Country: None (occurrence: None)
  Receive Date: 20120127
  Receipt Date: 20120125
  Transmission Date: 20120608
  Serious: Yes (Death, Hospitalization)
  Sender: FDA-Public Use
  Company Number: US-ASTELLAS-2011US008770

PATIENT
  Sex: Female

DRUGS (4)
  1. ARMODAFINIL [Concomitant]
     Indication: ANTIFUNGAL TREATMENT
     Dosage: 100 MG, UID/QD
     Route: 048
  2. LOVENOX [Concomitant]
     Indication: PRODUCT USED FOR UNKNOWN INDICATION
     Dosage: UNK
     Route: 065
  3. PROGRAF [Suspect]
     Indication: PANCREAS TRANSPLANT
     Dosage: 1.5 MG, BID
     Route: 048
     Dates: start: 19980801, end: 20111101
  4. FENTANYL [Concomitant]
     Indication: PAIN
     Dosage: UNK
     Route: 062

REACTIONS (2)
  - OFF LABEL USE [None]
  - LUNG CANCER METASTATIC [None]
